FAERS Safety Report 8369092-1 (Version None)
Quarter: 2012Q2

REPORT INFORMATION
  Report Type: 
  Country: None (occurrence: None)
  Receive Date: 20120518
  Receipt Date: 20120504
  Transmission Date: 20120825
  Serious: Yes (Other)
  Sender: FDA-Public Use
  Company Number: US-JNJFOC-20120507152

PATIENT
  Sex: Female

DRUGS (12)
  1. CEFIXIME [Concomitant]
     Route: 065
  2. TEMAZEPAM [Concomitant]
     Route: 065
  3. TOPAMAX [Suspect]
     Indication: MIGRAINE
     Route: 048
  4. PROPRANOLOL [Suspect]
     Indication: MIGRAINE
     Route: 065
  5. FLUOXETINE HYDROCHLORIDE [Concomitant]
     Route: 065
  6. SUMATRIPTAN [Concomitant]
     Route: 065
  7. HUMIRA [Suspect]
     Route: 065
     Dates: start: 20110101
  8. RANITIDINE HCL [Concomitant]
     Route: 065
  9. ESOMEPRAZOLE SODIUM [Concomitant]
     Route: 065
  10. PROCHLORPERAZINE EDISYLATE [Concomitant]
     Route: 065
  11. HUMIRA [Suspect]
     Indication: RHEUMATOID ARTHRITIS
     Route: 065
  12. ALPRAZOLAM [Concomitant]
     Route: 065

REACTIONS (5)
  - DENTAL CARIES [None]
  - DRY MOUTH [None]
  - PSORIASIS [None]
  - INSOMNIA [None]
  - PNEUMONIA [None]
